FAERS Safety Report 25065981 (Version 1)
Quarter: 2025Q1

REPORT INFORMATION
  Report Type: Report from Study
  Country: IN (occurrence: IN)
  Receive Date: 20250312
  Receipt Date: 20250312
  Transmission Date: 20250409
  Serious: Yes (Hospitalization, Other)
  Sender: ALEXION PHARMACEUTICALS
  Company Number: IN-AstraZeneca-CH-00822463A

PATIENT
  Age: 40 Year
  Weight: 40 kg

DRUGS (1)
  1. OLAPARIB [Suspect]
     Active Substance: OLAPARIB
     Indication: Maintenance of anaesthesia
     Dosage: 150 MILLIGRAM, BID

REACTIONS (5)
  - Product dose omission issue [Recovered/Resolved]
  - Back pain [Not Recovered/Not Resolved]
  - Pain [Recovering/Resolving]
  - Abdominal infection [Recovered/Resolved]
  - Asthenia [Not Recovered/Not Resolved]
